FAERS Safety Report 14781640 (Version 1)
Quarter: 2018Q2

REPORT INFORMATION
  Report Type: Spontaneous
  Country: US (occurrence: US)
  Receive Date: 20180420
  Receipt Date: 20180420
  Transmission Date: 20180711
  Serious: No
  Sender: FDA-Public Use
  Company Number: US-LUPIN PHARMACEUTICALS INC.-2018-01614

PATIENT
  Age: 22 Year
  Sex: Female

DRUGS (1)
  1. TRI-LO-MARZIA [Suspect]
     Active Substance: ETHINYL ESTRADIOL\NORGESTIMATE
     Indication: ORAL CONTRACEPTION
     Dosage: 1 DF (0.18,0.215,0.25MG/0 25 MG), QD
     Route: 048
     Dates: start: 20180219

REACTIONS (2)
  - Inappropriate schedule of drug administration [Unknown]
  - Menorrhagia [Not Recovered/Not Resolved]

NARRATIVE: CASE EVENT DATE: 20180223
